FAERS Safety Report 19010672 (Version 12)
Quarter: 2022Q2

REPORT INFORMATION
  Report Type: Report from Study
  Country: FR (occurrence: FR)
  Receive Date: 20210315
  Receipt Date: 20220422
  Transmission Date: 20220721
  Serious: Yes (Death, Life-Threatening, Hospitalization, Disabling, Other)
  Sender: FDA-Public Use
  Company Number: FR-BRISTOL-MYERS SQUIBB COMPANY-BMS-2021-023518

PATIENT
  Age: 71 Year
  Sex: Male
  Weight: 84 kg

DRUGS (12)
  1. NIVOLUMAB [Suspect]
     Active Substance: NIVOLUMAB
     Indication: Renal cell carcinoma
     Dosage: UNK
     Route: 065
  2. SUTENT [Suspect]
     Active Substance: SUNITINIB MALATE
     Indication: Renal cancer
     Dosage: 37.5 MG, 1X/DAY
     Route: 065
     Dates: start: 201711, end: 201711
  3. SUTENT [Suspect]
     Active Substance: SUNITINIB MALATE
     Dosage: UNK
     Route: 065
     Dates: end: 201712
  4. SUTENT [Suspect]
     Active Substance: SUNITINIB MALATE
     Dosage: 50 MG, 1X/DAY
     Route: 065
     Dates: start: 201512
  5. SUTENT [Suspect]
     Active Substance: SUNITINIB MALATE
     Dosage: 50 MILLIGRAM, QD
     Route: 065
     Dates: start: 20171205
  6. HYDROCORTISONE [Concomitant]
     Active Substance: HYDROCORTISONE
     Indication: Adrenal insufficiency
     Dosage: UNK
     Route: 065
     Dates: start: 201507
  7. LEVOTHYROXINE [Concomitant]
     Active Substance: LEVOTHYROXINE
     Indication: Hypothyroidism
     Dosage: UNK
     Route: 065
     Dates: start: 201702
  8. ESOMEPRAZOLE MAGNESIUM [Concomitant]
     Active Substance: ESOMEPRAZOLE MAGNESIUM
     Indication: Dyspepsia
     Dosage: UNK
     Route: 065
     Dates: start: 201607
  9. ARIXTRA [Concomitant]
     Active Substance: FONDAPARINUX SODIUM
     Indication: Phlebitis
     Dosage: UNK
     Route: 065
     Dates: start: 201611
  10. NICARDIPINE HYDROCHLORIDE [Concomitant]
     Active Substance: NICARDIPINE HYDROCHLORIDE
     Indication: Hypertension
     Dosage: UNK
     Route: 065
     Dates: start: 201512
  11. ATENOLOL [Concomitant]
     Active Substance: ATENOLOL
     Indication: Hypertension
     Dosage: UNK
     Route: 065
     Dates: start: 201602
  12. IRBESARTAN [Concomitant]
     Active Substance: IRBESARTAN
     Indication: Hypertension
     Dosage: UNK
     Route: 065
     Dates: start: 201511

REACTIONS (30)
  - Hyperkalaemia [Recovered/Resolved]
  - Pelvic abscess [Not Recovered/Not Resolved]
  - Septic shock [Not Recovered/Not Resolved]
  - Dehydration [Recovered/Resolved]
  - Malnutrition [Not Recovered/Not Resolved]
  - Adrenal insufficiency [Recovered/Resolved]
  - Metabolic acidosis [Recovered/Resolved]
  - Anastomotic fistula [Not Recovered/Not Resolved]
  - Pancreatitis acute [Recovered/Resolved]
  - Clostridium difficile colitis [Recovered/Resolved]
  - Adrenal insufficiency [Recovered/Resolved with Sequelae]
  - Hypotension [Recovered/Resolved]
  - Enterococcal bacteraemia [Recovered/Resolved]
  - Metabolic acidosis [Recovered/Resolved]
  - Hyperkalaemia [Recovered/Resolved]
  - Acute kidney injury [Recovered/Resolved]
  - Hypothermia [Recovered/Resolved]
  - Pancreatitis acute [Recovered/Resolved]
  - Metabolic acidosis [Recovered/Resolved]
  - Renal impairment [Not Recovered/Not Resolved]
  - Acute kidney injury [Not Recovered/Not Resolved]
  - Abdominal abscess [Not Recovered/Not Resolved]
  - Acute kidney injury [Fatal]
  - General physical health deterioration [Not Recovered/Not Resolved]
  - Acute kidney injury [Fatal]
  - Melaena [Fatal]
  - Haemorrhage [Fatal]
  - Malignant neoplasm progression [Fatal]
  - Gastrointestinal ulcer [Fatal]
  - Bacteraemia [Fatal]

NARRATIVE: CASE EVENT DATE: 20181204
